FAERS Safety Report 10366554 (Version 1)
Quarter: 2014Q3

REPORT INFORMATION
  Report Type: Spontaneous
  Country: JP (occurrence: JP)
  Receive Date: 20140806
  Receipt Date: 20140806
  Transmission Date: 20150326
  Serious: Yes (Death)
  Sender: FDA-Public Use
  Company Number: JP-MYLAN-2014M1000023

PATIENT

DRUGS (2)
  1. AMLODIPINE [Suspect]
     Active Substance: AMLODIPINE BESYLATE
     Dosage: 1000 MG, UNK
     Route: 048
  2. DOXAZOSIN MESILATE [Suspect]
     Active Substance: DOXAZOSIN MESYLATE
     Dosage: 30 MG, UNK
     Route: 048

REACTIONS (10)
  - Hypotension [Fatal]
  - Multi-organ failure [Fatal]
  - Gastrointestinal necrosis [Fatal]
  - Intentional overdose [Fatal]
  - Ileal perforation [None]
  - Abdominal distension [None]
  - Anaemia [None]
  - Haemodialysis [None]
  - Gastrooesophageal reflux disease [None]
  - Completed suicide [Fatal]
